FAERS Safety Report 7435728-2 (Version None)
Quarter: 2011Q2

REPORT INFORMATION
  Report Type: 
  Country: None (occurrence: None)
  Receive Date: 20110425
  Receipt Date: 20110413
  Transmission Date: 20111010
  Serious: Yes (Hospitalization)
  Sender: FDA-Public Use
  Company Number: US-ELI_LILLY_AND_COMPANY-US201102003615

PATIENT
  Sex: Female

DRUGS (13)
  1. WARFARIN [Concomitant]
     Dosage: UNK, DAILY (1/D)
  2. FORTEO [Suspect]
     Indication: OSTEOPOROSIS
     Dosage: 20 UG, DAILY (1/D)
     Dates: start: 20090622
  3. FORTEO [Suspect]
     Dosage: 20 UG, DAILY (1/D)
  4. FORTEO [Suspect]
     Dosage: 20 UG, DAILY (1/D)
  5. OXYCODONE [Concomitant]
     Dosage: 3.25 MG, AS NEEDED
  6. CARVEDILOL [Concomitant]
     Dosage: UNK, 2/D
  7. CLORAZEPATE DIPOTASSIUM [Concomitant]
     Dosage: UNK, AS NEEDED
  8. CALCIUM [Concomitant]
     Dosage: 1500 MG, UNK
  9. CYMBALTA [Concomitant]
     Dosage: UNK, 2/D
  10. BENICAR [Concomitant]
     Dosage: UNK, DAILY (1/D)
  11. SIMVASTATIN [Concomitant]
     Dosage: 20 MG, DAILY (1/D)
  12. PRILOSEC [Concomitant]
     Dosage: UNK, DAILY (1/D)
  13. NITROFURANTOIN [Concomitant]
     Dosage: UNK, DAILY (1/D)

REACTIONS (9)
  - BONE PAIN [None]
  - MYALGIA [None]
  - OSTEOARTHRITIS [None]
  - PAIN [None]
  - KNEE ARTHROPLASTY [None]
  - WRIST FRACTURE [None]
  - JOINT DISLOCATION [None]
  - FALL [None]
  - HAEMORRHOIDS [None]
